FAERS Safety Report 21706952 (Version 1)
Quarter: 2022Q4

REPORT INFORMATION
  Report Type: Spontaneous
  Country: US (occurrence: US)
  Receive Date: 20221209
  Receipt Date: 20221209
  Transmission Date: 20230113
  Serious: No
  Sender: FDA-Public Use
  Company Number: US-CYCLE PHARMACEUTICALS LTD-2022-CYC-000041

PATIENT

DRUGS (1)
  1. NITYR [Suspect]
     Active Substance: NITISINONE
     Indication: Tyrosinaemia
     Dosage: 3 TABLETS BY MOUTH, BID
     Route: 048

REACTIONS (3)
  - Illness [Unknown]
  - Product dose omission issue [Unknown]
  - Photophobia [Unknown]

NARRATIVE: CASE EVENT DATE: 20221101
